FAERS Safety Report 8169412-7 (Version None)
Quarter: 2012Q1

REPORT INFORMATION
  Report Type: 
  Country: None (occurrence: None)
  Receive Date: 20120222
  Receipt Date: 20120215
  Transmission Date: 20120608
  Serious: Yes (Death, Other)
  Sender: FDA-Public Use
  Company Number: 2012SP006150

PATIENT
  Age: 64 Year
  Sex: Male
  Weight: 70 kg

DRUGS (11)
  1. AMOBAN [Concomitant]
  2. TELAVIC (TELAPREVIR) (INVESTIGATIONAL DRUG) [Suspect]
     Indication: HEPATITIS C
     Dosage: 2250 MG;QD;PO 2000 MG;QD;PO
     Route: 048
     Dates: start: 20120120
  3. TELAVIC (TELAPREVIR) (INVESTIGATIONAL DRUG) [Suspect]
     Indication: HEPATITIS C
     Dosage: 2250 MG;QD;PO 2000 MG;QD;PO
     Route: 048
     Dates: start: 20120106, end: 20120119
  4. HALCION [Concomitant]
  5. LENDORMIN [Concomitant]
  6. PEGINTERFERON ALFA-2B [Suspect]
     Indication: HEPATITIS C
     Dosage: 1.5 MCG/KG;QW;SC
     Route: 058
     Dates: start: 20120106
  7. RIBAVIRIN [Suspect]
     Indication: HEPATITIS C
     Dosage: 800 MG;QD;PO 400 MG;QD;PO
     Route: 048
     Dates: start: 20120106, end: 20120119
  8. RIBAVIRIN [Suspect]
     Indication: HEPATITIS C
     Dosage: 800 MG;QD;PO 400 MG;QD;PO
     Route: 048
     Dates: start: 20120120
  9. INTERFERON [Concomitant]
  10. RIBAVIRIN [Concomitant]
  11. ERUODIN [Concomitant]

REACTIONS (1)
  - SUDDEN DEATH [None]
